FAERS Safety Report 5487682-0 (Version None)
Quarter: 2007Q4

REPORT INFORMATION
  Report Type: 
  Country: None (occurrence: None)
  Receive Date: 20071015
  Receipt Date: 20071015
  Transmission Date: 20080405
  Serious: No
  Sender: FDA-Public Use
  Company Number: None

PATIENT
  Sex: Female
  Weight: 77.1115 kg

DRUGS (3)
  1. DIAZEPAM [Suspect]
     Indication: MUSCLE SPASMS
     Dosage: 1/4 TO 1 OF 5 MG. TABLET   1-2 PER DAY  PO
     Route: 048
     Dates: start: 20070822, end: 20071013
  2. DIAZEPAM [Suspect]
     Indication: TEMPOROMANDIBULAR JOINT SYNDROME
     Dosage: 1/4 TO 1 OF 5 MG. TABLET   1-2 PER DAY  PO
     Route: 048
     Dates: start: 20070822, end: 20071013
  3. DIAZEPAM [Suspect]

REACTIONS (2)
  - DRUG EFFECT DECREASED [None]
  - PHARMACEUTICAL PRODUCT COMPLAINT [None]
